FAERS Safety Report 25390622 (Version 2)
Quarter: 2025Q2

REPORT INFORMATION
  Report Type: Spontaneous
  Country: US (occurrence: US)
  Receive Date: 20250603
  Receipt Date: 20250604
  Transmission Date: 20250717
  Serious: Yes (Other)
  Sender: CHEPLAPHARM
  Company Number: US-ASTRAZENECA-202505USA014405US

PATIENT
  Sex: Male
  Weight: 155 kg

DRUGS (17)
  1. QUETIAPINE [Suspect]
     Active Substance: QUETIAPINE
  2. FARXIGA [Suspect]
     Active Substance: DAPAGLIFLOZIN PROPANEDIOL
     Indication: Product used for unknown indication
  3. CARBAMAZEPINE [Concomitant]
     Active Substance: CARBAMAZEPINE
  4. EMPAGLIFLOZIN [Concomitant]
     Active Substance: EMPAGLIFLOZIN
  5. PAROXETINE HYDROCHLORIDE [Concomitant]
     Active Substance: PAROXETINE HYDROCHLORIDE
  6. PROZAC [Concomitant]
     Active Substance: FLUOXETINE HYDROCHLORIDE
  7. FLUVOXAMINE MALEATE [Concomitant]
     Active Substance: FLUVOXAMINE MALEATE
  8. Oxetine [Concomitant]
  9. SEROTONIN [Concomitant]
     Active Substance: SEROTONIN
  10. TRAZODONE HYDROCHLORIDE [Concomitant]
     Active Substance: TRAZODONE HYDROCHLORIDE
  11. HALDOL [Concomitant]
     Active Substance: HALOPERIDOL
  12. TOPAMAX [Concomitant]
     Active Substance: TOPIRAMATE
  13. RITALIN [Concomitant]
     Active Substance: METHYLPHENIDATE HYDROCHLORIDE
  14. DAPAGLIFLOZIN [Concomitant]
     Active Substance: DAPAGLIFLOZIN
  15. LEXAPRO [Concomitant]
     Active Substance: ESCITALOPRAM OXALATE
  16. Sarotine [Concomitant]
  17. Temesta [Concomitant]

REACTIONS (27)
  - Hypothalamo-pituitary disorder [Unknown]
  - Epilepsy [Unknown]
  - Suicidal ideation [Unknown]
  - Anhedonia [Unknown]
  - Back pain [Unknown]
  - Fatigue [Unknown]
  - Hunger [Unknown]
  - Hypersensitivity [Unknown]
  - Insomnia [Unknown]
  - Arthralgia [Unknown]
  - Migraine with aura [Unknown]
  - Hypoaesthesia [Unknown]
  - Obesity [Unknown]
  - Weight increased [Unknown]
  - Depression [Unknown]
  - Polydipsia [Unknown]
  - Obsessive-compulsive disorder [Unknown]
  - Hypersomnia [Unknown]
  - Polyuria [Unknown]
  - Neuropsychiatric syndrome [Unknown]
  - Affective disorder [Unknown]
  - Nervous system disorder [Unknown]
  - Metabolic disorder [Unknown]
  - Type 2 diabetes mellitus [Unknown]
  - Sleep disorder [Unknown]
  - Disturbance in attention [Unknown]
  - Paraesthesia [Unknown]
